FAERS Safety Report 7978957-1 (Version None)
Quarter: 2011Q4

REPORT INFORMATION
  Report Type: 
  Country: None (occurrence: None)
  Receive Date: 20111214
  Receipt Date: 20111212
  Transmission Date: 20120403
  Serious: Yes (Death, Other)
  Sender: FDA-Public Use
  Company Number: US-AMGEN-USASP2011062168

PATIENT
  Age: 74 Year
  Sex: Female

DRUGS (3)
  1. NPLATE [Suspect]
     Indication: WALDENSTROM'S MACROGLOBULINAEMIA
  2. CORTICOSTEROIDS [Concomitant]
     Indication: IDIOPATHIC THROMBOCYTOPENIC PURPURA
  3. NPLATE [Suspect]
     Indication: IDIOPATHIC THROMBOCYTOPENIC PURPURA
     Dosage: 10 MUG/KG, UNK
     Dates: start: 20100128, end: 20100621

REACTIONS (2)
  - DRUG INEFFECTIVE [None]
  - DEATH [None]
